FAERS Safety Report 9406477 (Version 1)
Quarter: 2013Q3

REPORT INFORMATION
  Report Type: Spontaneous
  Country: TW (occurrence: TW)
  Receive Date: 20130718
  Receipt Date: 20130718
  Transmission Date: 20140515
  Serious: Yes (Hospitalization, Other)
  Sender: FDA-Public Use
  Company Number: TW-009507513-1307IND007638

PATIENT
  Age: 50 Year
  Sex: Male
  Weight: 80.68 kg

DRUGS (2)
  1. SAPHRIS [Suspect]
     Indication: CONDITION AGGRAVATED
     Dosage: 10 MG, BID
     Route: 048
     Dates: start: 20120223
  2. SAPHRIS [Suspect]
     Indication: SCHIZOPHRENIA

REACTIONS (7)
  - Hallucination [Unknown]
  - Hearing impaired [Unknown]
  - Condition aggravated [Unknown]
  - Insomnia [Unknown]
  - Schizophrenia [Unknown]
  - Anxiety [Unknown]
  - Incorrect route of drug administration [Unknown]
